FAERS Safety Report 23992382 (Version 1)
Quarter: 2024Q2

REPORT INFORMATION
  Report Type: Spontaneous
  Country: CN (occurrence: CN)
  Receive Date: 20240620
  Receipt Date: 20240620
  Transmission Date: 20240715
  Serious: Yes (Other)
  Sender: FDA-Public Use
  Company Number: CN-Jiangsu Hansoh Pharmaceutical Co., Ltd-2158337

PATIENT
  Age: 55 Year
  Sex: Male

DRUGS (2)
  1. VINORELBINE TARTRATE [Suspect]
     Active Substance: VINORELBINE TARTRATE
     Indication: Laryngeal cancer
     Route: 040
     Dates: start: 20240521, end: 20240521
  2. CARBOPLATIN [Suspect]
     Active Substance: CARBOPLATIN
     Route: 040
     Dates: start: 20240521, end: 20240521

REACTIONS (4)
  - Renal impairment [Recovering/Resolving]
  - Off label use [Unknown]
  - Neutrophil count decreased [Recovering/Resolving]
  - White blood cell count decreased [Recovering/Resolving]

NARRATIVE: CASE EVENT DATE: 20240528
